FAERS Safety Report 10137125 (Version 1)
Quarter: 2014Q2

REPORT INFORMATION
  Report Type: Spontaneous
  Country: JP (occurrence: None)
  Receive Date: 20140425
  Receipt Date: 20140425
  Transmission Date: 20141212
  Serious: Yes (Other)
  Sender: FDA-Public Use
  Company Number: KAD201404-000413

PATIENT
  Sex: 0

DRUGS (4)
  1. RIBAVIRIN [Suspect]
  2. PEGINTERFERON ALFA-2B [Suspect]
  3. TELAPREVIR [Suspect]
  4. CYCLOSPORINE A [Suspect]

REACTIONS (1)
  - Hepatitis [None]
